FAERS Safety Report 7240114-4 (Version None)
Quarter: 2011Q1

REPORT INFORMATION
  Report Type: 
  Country: None (occurrence: None)
  Receive Date: 20110124
  Receipt Date: 20110118
  Transmission Date: 20110831
  Serious: Yes (Other)
  Sender: FDA-Public Use
  Company Number: US-JNJFOC-20110105156

PATIENT
  Sex: Female
  Weight: 45.36 kg

DRUGS (3)
  1. FENTANYL-100 [Suspect]
     Dosage: NDC: 0781-7241-55
     Route: 062
  2. FENTANYL-100 [Suspect]
     Indication: BACK PAIN
     Route: 062
  3. FENTANYL-100 [Suspect]
     Route: 062

REACTIONS (4)
  - DRUG DOSE OMISSION [None]
  - WRONG TECHNIQUE IN DRUG USAGE PROCESS [None]
  - RIB FRACTURE [None]
  - COGNITIVE DISORDER [None]
